FAERS Safety Report 6009455-2 (Version None)
Quarter: 2008Q4

REPORT INFORMATION
  Report Type: 
  Country: None (occurrence: None)
  Receive Date: 20081217
  Receipt Date: 20080924
  Transmission Date: 20090506
  Serious: No
  Sender: FDA-Public Use
  Company Number: US-BAYER-200834601NA

PATIENT
  Age: 29 Year
  Sex: Female
  Weight: 46 kg

DRUGS (4)
  1. YAZ [Suspect]
     Indication: CONTRACEPTION
     Route: 048
     Dates: start: 20080101
  2. ATARAX [Concomitant]
  3. MICROBID [Concomitant]
  4. ZOLOFT [Concomitant]

REACTIONS (2)
  - AMENORRHOEA [None]
  - METRORRHAGIA [None]
